FAERS Safety Report 7116889-1 (Version None)
Quarter: 2010Q4

REPORT INFORMATION
  Report Type: 
  Country: None (occurrence: None)
  Receive Date: 20101122
  Receipt Date: 20101022
  Transmission Date: 20110411
  Serious: Yes (Hospitalization)
  Sender: FDA-Public Use
  Company Number: FR-PFIZER INC-2010134337

PATIENT
  Age: 63 Year
  Sex: Female

DRUGS (5)
  1. SOLU-MEDROL [Suspect]
     Dosage: 120 MG, 1X/DAY
     Route: 034
     Dates: start: 20100827, end: 20100827
  2. CISPLATIN [Suspect]
     Indication: METASTATIC NEOPLASM
     Dosage: 65 MG, 1X/DAY
     Route: 034
     Dates: start: 20100827, end: 20100827
  3. NAVELBINE [Suspect]
     Indication: METASTATIC NEOPLASM
     Dosage: 39.5 MG, 1X/DAY
     Route: 034
     Dates: start: 20100827, end: 20100827
  4. ZOPHREN [Suspect]
     Indication: ANTIEMETIC SUPPORTIVE CARE
     Dosage: 8 MG, 1X/DAY
     Route: 034
     Dates: start: 20100827, end: 20100827
  5. ELECTROLYTES NOS (POLYIONIQUE) [Suspect]
     Indication: FLUID REPLACEMENT
     Dosage: 2 L, 1X/DAY
     Route: 034
     Dates: start: 20100827, end: 20100827

REACTIONS (3)
  - CHEST PAIN [None]
  - DYSPNOEA [None]
  - OXYGEN SATURATION DECREASED [None]
